FAERS Safety Report 17688597 (Version 1)
Quarter: 2020Q2

REPORT INFORMATION
  Report Type: Spontaneous
  Country: US (occurrence: US)
  Receive Date: 20200418
  Receipt Date: 20200418
  Transmission Date: 20200714
  Serious: Yes (Hospitalization)
  Sender: FDA-Public Use
  Company Number: None

PATIENT
  Sex: Female
  Weight: 68 kg

DRUGS (2)
  1. GEMCITABINE HYDROCHLORIDE (613327) [Suspect]
     Active Substance: GEMCITABINE HYDROCHLORIDE
  2. TAXOL [Suspect]
     Active Substance: PACLITAXEL

REACTIONS (5)
  - Pyrexia [None]
  - Neutrophil count decreased [None]
  - White blood cell count decreased [None]
  - Bacterial infection [None]
  - Upper respiratory tract infection [None]

NARRATIVE: CASE EVENT DATE: 20200323
